FAERS Safety Report 5269648-9 (Version None)
Quarter: 2007Q1

REPORT INFORMATION
  Report Type: 
  Country: None (occurrence: None)
  Receive Date: 20070314
  Receipt Date: 20070301
  Transmission Date: 20070707
  Serious: Yes (Death)
  Sender: FDA-Public Use
  Company Number: 237714

PATIENT
  Age: 79 Year
  Sex: Male

DRUGS (4)
  1. RITUXIMAB  (RITUXIMAB) CON FOR SOLUTION FOR INFUSION [Suspect]
     Indication: LYMPHOMA
     Dosage: 375 MG/M2, INTRAVENOUS
     Route: 042
  2. BETAMETHASONE [Concomitant]
  3. DIPHENHYDRAMINE HCL [Concomitant]
  4. ACETAMINOPHEN [Concomitant]

REACTIONS (3)
  - HAEMOPNEUMOTHORAX [None]
  - INTERSTITIAL LUNG DISEASE [None]
  - PULMONARY VASCULITIS [None]
